FAERS Safety Report 5395168-7 (Version None)
Quarter: 2007Q3

REPORT INFORMATION
  Report Type: 
  Country: None (occurrence: None)
  Receive Date: 20070724
  Receipt Date: 20070710
  Transmission Date: 20080115
  Serious: Yes (Death, Hospitalization, Disabling)
  Sender: FDA-Public Use
  Company Number: JP-BOEHRINGER INGELHEIM PHARMACEUTICALS, INC.-2007-BP-17120NB

PATIENT
  Sex: Female
  Weight: 38 kg

DRUGS (15)
  1. PRAMIPEXOLE DIHYDROCHLORIDE [Suspect]
     Indication: PARKINSON'S DISEASE
     Route: 048
     Dates: start: 20050302, end: 20060706
  2. PURSENNID (SENNOSIDE) [Concomitant]
     Indication: CONSTIPATION
     Route: 048
     Dates: start: 20031226
  3. SEROQUEL [Concomitant]
     Indication: PSYCHIATRIC SYMPTOM
     Route: 048
     Dates: start: 20050705
  4. ARICEPT [Concomitant]
     Indication: PSYCHIATRIC SYMPTOM
     Route: 048
     Dates: start: 20050819
  5. TETRAMIDE [Concomitant]
     Indication: PSYCHIATRIC SYMPTOM
     Route: 048
     Dates: start: 20050902
  6. SYMMETREL [Concomitant]
     Indication: PARKINSON'S DISEASE
     Route: 048
     Dates: start: 20050609, end: 20050707
  7. NEODOPASOL [Concomitant]
     Indication: PARKINSON'S DISEASE
     Route: 048
     Dates: start: 19990304
  8. DOPS [Concomitant]
     Indication: PARKINSON'S DISEASE
     Route: 048
     Dates: start: 20010423
  9. GRAMALIL [Concomitant]
     Indication: PSYCHIATRIC SYMPTOM
     Route: 048
     Dates: start: 20010618
  10. DIHYDERGOT (DIHYDROERGOTAMINE MESILATE) [Concomitant]
     Indication: ORTHOSTATIC HYPOTENSION
     Route: 048
     Dates: start: 20031226
  11. METHYCOBAL (MECOBALAMIN) [Concomitant]
     Indication: ORTHOSTATIC HYPOTENSION
     Route: 048
     Dates: start: 20010326
  12. METLIGINE [Concomitant]
     Indication: ORTHOSTATIC HYPOTENSION
     Route: 048
     Dates: start: 20000207
  13. RIVOTRIL [Concomitant]
     Indication: INSOMNIA
     Route: 048
     Dates: start: 19990728
  14. RESLIN [Concomitant]
     Indication: INSOMNIA
     Route: 048
     Dates: start: 20001012
  15. ROCALTROL [Concomitant]
     Indication: OSTEOPOROSIS
     Route: 048
     Dates: start: 20000622

REACTIONS (12)
  - ALTERED STATE OF CONSCIOUSNESS [None]
  - ANOREXIA [None]
  - BRAIN HERNIATION [None]
  - CEREBRAL ARTERY EMBOLISM [None]
  - DELUSION [None]
  - FALL [None]
  - FEMUR FRACTURE [None]
  - GAMMA-GLUTAMYLTRANSFERASE INCREASED [None]
  - HALLUCINATION [None]
  - PNEUMONIA ASPIRATION [None]
  - SYNCOPE [None]
  - WHITE BLOOD CELL COUNT INCREASED [None]
